FAERS Safety Report 7747016-5 (Version None)
Quarter: 2011Q3

REPORT INFORMATION
  Report Type: 
  Country: None (occurrence: None)
  Receive Date: 20110913
  Receipt Date: 20110907
  Transmission Date: 20111222
  Serious: Yes (Life-Threatening, Hospitalization)
  Sender: FDA-Public Use
  Company Number: PHHO2009DE03493

PATIENT
  Sex: Male

DRUGS (6)
  1. SANDIMMUNE [Suspect]
     Indication: RENAL TRANSPLANT
     Dosage: 2X550 MG
     Route: 048
     Dates: start: 20090307, end: 20090308
  2. SANDIMMUNE [Suspect]
     Dosage: 2X500 MG
     Route: 048
     Dates: start: 20090309
  3. SANDIMMUNE [Suspect]
     Dosage: 2X400 MG
     Route: 048
     Dates: start: 20090310, end: 20090311
  4. MYFORTIC [Suspect]
     Indication: RENAL TRANSPLANT
     Dosage: 1440 MG
     Route: 048
     Dates: start: 20090307, end: 20090311
  5. NO TREATMENT RECEIVED [Suspect]
     Indication: RENAL TRANSPLANT
     Dosage: NO TREATMENT
  6. SANDIMMUNE [Suspect]
     Dosage: 100 MG I.V. BID
     Route: 042
     Dates: start: 20090312

REACTIONS (6)
  - INFECTIOUS PERITONITIS [None]
  - COMPLICATIONS OF TRANSPLANTED KIDNEY [None]
  - DUODENAL ULCER PERFORATION [None]
  - SEPSIS [None]
  - ABDOMINAL PAIN [None]
  - MULTI-ORGAN FAILURE [None]
